FAERS Safety Report 5840611-X (Version None)
Quarter: 2008Q3

REPORT INFORMATION
  Report Type: 
  Country: None (occurrence: None)
  Receive Date: 20080730
  Receipt Date: 20080519
  Transmission Date: 20090109
  Serious: No
  Sender: FDA-Public Use
  Company Number: PHEH2008US04681

PATIENT
  Age: 63 Year
  Sex: Male

DRUGS (4)
  1. TEKTURNA [Suspect]
     Indication: HYPERTENSION
     Dosage: 150 MG, QD, ORAL
     Route: 048
     Dates: start: 20080513, end: 20080516
  2. VERAPAMIL [Concomitant]
  3. VALTREX [Concomitant]
  4. BUDESONIDE [Concomitant]

REACTIONS (1)
  - RENAL PAIN [None]
